FAERS Safety Report 25439298 (Version 1)
Quarter: 2025Q2

REPORT INFORMATION
  Report Type: Spontaneous
  Country: US (occurrence: None)
  Receive Date: 20250612
  Receipt Date: 20250612
  Transmission Date: 20250716
  Serious: Yes (Life-Threatening, Hospitalization, Disabling, Other)
  Sender: FDA-CTU
  Company Number: None

PATIENT
  Age: 24 Year
  Sex: Male
  Weight: 82.8 kg

DRUGS (2)
  1. LAMOTRIGINE [Suspect]
     Active Substance: LAMOTRIGINE
  2. XOLAIR [Concomitant]
     Active Substance: OMALIZUMAB

REACTIONS (10)
  - Urticaria [None]
  - Illness [None]
  - Hypotension [None]
  - Oxygen saturation decreased [None]
  - Swelling [None]
  - Pruritus [None]
  - Brain fog [None]
  - Abdominal pain [None]
  - Mast cell activation syndrome [None]
  - Impaired work ability [None]

NARRATIVE: CASE EVENT DATE: 20241227
